FAERS Safety Report 6614417-8 (Version None)
Quarter: 2010Q1

REPORT INFORMATION
  Report Type: 
  Country: None (occurrence: None)
  Receive Date: 20100304
  Receipt Date: 20100219
  Transmission Date: 20100710
  Serious: Yes (Hospitalization)
  Sender: FDA-Public Use
  Company Number: ES-ELI_LILLY_AND_COMPANY-ES201002005824

PATIENT
  Age: 84 Year
  Sex: Female

DRUGS (6)
  1. FORTEO [Suspect]
     Indication: OSTEOPOROSIS
     Dosage: 20 UG, DAILY (1/D)
     Route: 058
     Dates: start: 20091201, end: 20100209
  2. MIACALCIN [Concomitant]
     Indication: OSTEOPOROSIS
     Dosage: UNK, UNKNOWN
     Route: 055
  3. METAMIZOLE SODIUM [Concomitant]
     Dosage: UNK, UNKNOWN
     Route: 065
  4. ADIRO [Concomitant]
     Dosage: UNK, UNKNOWN
     Route: 065
  5. FOSITEN [Concomitant]
     Dosage: UNK, UNKNOWN
     Route: 065
  6. NITRODERM [Concomitant]
     Dosage: UNK, UNKNOWN
     Route: 065

REACTIONS (1)
  - ARRHYTHMIA [None]
